FAERS Safety Report 16059651 (Version 3)
Quarter: 2019Q2

REPORT INFORMATION
  Report Type: Report from Study
  Country: AU (occurrence: AT)
  Receive Date: 20190311
  Receipt Date: 20190618
  Transmission Date: 20190711
  Serious: Yes (Death, Hospitalization, Other)
  Sender: FDA-Public Use
  Company Number: AU-BRISTOL-MYERS SQUIBB COMPANY-BMS-2019-024141

PATIENT
  Age: 77 Year
  Sex: Male
  Weight: 81 kg

DRUGS (23)
  1. NIVOLUMAB [Suspect]
     Active Substance: NIVOLUMAB
     Indication: PRODUCT USED FOR UNKNOWN INDICATION
     Dosage: 243 ABSENT, Q2WK
     Route: 065
     Dates: start: 20180720, end: 20180803
  2. NIVOLUMAB [Suspect]
     Active Substance: NIVOLUMAB
     Indication: PRODUCT USED FOR UNKNOWN INDICATION
     Dosage: 246 ABSENT, Q2WK
     Route: 065
     Dates: start: 20180914, end: 20180914
  3. NIVOLUMAB [Suspect]
     Active Substance: NIVOLUMAB
     Indication: MALIGNANT MELANOMA
     Dosage: 243 ABSENT, Q2WK
     Route: 065
     Dates: start: 20180209, end: 20180406
  4. SEDACORON [Concomitant]
     Active Substance: AMIODARONE HYDROCHLORIDE
     Indication: PRODUCT USED FOR UNKNOWN INDICATION
     Dosage: 200 MILLIGRAM, DAILY
     Route: 048
  5. ZOFRAN [Concomitant]
     Active Substance: ONDANSETRON HYDROCHLORIDE
     Indication: NAUSEA
     Dosage: 8 MILLIGRAM, AS PER NEEDED
     Route: 048
     Dates: start: 2015
  6. NIVOLUMAB [Suspect]
     Active Substance: NIVOLUMAB
     Indication: PRODUCT USED FOR UNKNOWN INDICATION
     Dosage: 243 ABSENT, Q2WK
     Route: 065
     Dates: start: 20180928, end: 20180928
  7. AVELOX [Concomitant]
     Active Substance: MOXIFLOXACIN HYDROCHLORIDE
     Indication: INFECTION
     Dosage: 400 MILLIGRAM, DAILY
     Route: 048
     Dates: start: 20181012, end: 20181018
  8. AUGMENTIN [Concomitant]
     Active Substance: AMOXICILLIN\CLAVULANATE POTASSIUM
     Indication: PROPHYLAXIS
     Dosage: 1 GRAM, DAILY
     Route: 048
     Dates: start: 20181214, end: 20181228
  9. NIVOLUMAB [Suspect]
     Active Substance: NIVOLUMAB
     Indication: PRODUCT USED FOR UNKNOWN INDICATION
     Dosage: 243 ABSENT, Q2WK
     Route: 065
     Dates: start: 20180604, end: 20180622
  10. EUTHYROX [Concomitant]
     Active Substance: LEVOTHYROXINE SODIUM
     Indication: PRODUCT USED FOR UNKNOWN INDICATION
     Dosage: 50 MICROGRAM, DAILY
     Route: 048
  11. MARCOUMAR [Concomitant]
     Active Substance: PHENPROCOUMON
     Indication: PRODUCT USED FOR UNKNOWN INDICATION
     Dosage: 3 MILLIGRAM, DAILY
     Route: 048
  12. BONDRONAT                          /01304701/ [Concomitant]
     Active Substance: IBANDRONATE SODIUM
     Indication: METASTASES TO BONE
     Dosage: 6 MILLIGRAM, QMO
     Route: 042
     Dates: start: 2015
  13. NIVOLUMAB [Suspect]
     Active Substance: NIVOLUMAB
     Indication: LUNG NEOPLASM MALIGNANT
     Dosage: 240 ABSENT, Q2WK
     Route: 065
     Dates: start: 20180420, end: 20180518
  14. EUTHYROX [Concomitant]
     Active Substance: LEVOTHYROXINE SODIUM
     Indication: THYROID DISORDER
     Dosage: 75 MICROGRAM, DAILY
     Route: 048
     Dates: start: 20181221
  15. FINASTERID [Concomitant]
     Active Substance: FINASTERIDE
     Indication: PRODUCT USED FOR UNKNOWN INDICATION
     Dosage: 5 MILLIGRAM, DAILY
     Route: 048
  16. LOSARTAN. [Concomitant]
     Active Substance: LOSARTAN
     Indication: PRODUCT USED FOR UNKNOWN INDICATION
     Dosage: 100 MILLIGRAM, DAILY
     Route: 048
  17. CAL D VITA [Concomitant]
     Indication: METASTASES TO BONE
     Dosage: 1200 MILLIGRAM, DAILY
     Route: 048
     Dates: start: 2015
  18. NIVOLUMAB [Suspect]
     Active Substance: NIVOLUMAB
     Indication: PRODUCT USED FOR UNKNOWN INDICATION
     Dosage: 246 ABSENT, Q2WK
     Route: 065
     Dates: start: 20180706, end: 20180706
  19. NIVOLUMAB [Suspect]
     Active Substance: NIVOLUMAB
     Indication: PRODUCT USED FOR UNKNOWN INDICATION
     Dosage: 241.5 ABSENT, Q2WK
     Route: 065
     Dates: start: 20180817, end: 20180817
  20. NIVOLUMAB [Suspect]
     Active Substance: NIVOLUMAB
     Indication: PRODUCT USED FOR UNKNOWN INDICATION
     Dosage: 243.6 ABSENT, Q2WK
     Route: 065
     Dates: start: 20180831, end: 20180831
  21. NIVOLUMAB [Suspect]
     Active Substance: NIVOLUMAB
     Indication: PRODUCT USED FOR UNKNOWN INDICATION
     Dosage: 235.2 ABSENT, Q3WK
     Route: 065
     Dates: start: 20181018, end: 20181018
  22. NIVOLUMAB [Suspect]
     Active Substance: NIVOLUMAB
     Indication: PRODUCT USED FOR UNKNOWN INDICATION
     Dosage: 237 ABSENT, Q3WK
     Route: 065
     Dates: start: 20181109, end: 20181221
  23. PASPERTIN                          /00041902/ [Concomitant]
     Active Substance: METOCLOPRAMIDE HYDROCHLORIDE
     Indication: NAUSEA
     Dosage: 10 MILLIGRAM, AS PER NEEDED
     Route: 048
     Dates: start: 2015

REACTIONS (2)
  - Cardiac dysfunction [Fatal]
  - Immune-mediated pneumonitis [Fatal]

NARRATIVE: CASE EVENT DATE: 20190114
